FAERS Safety Report 20782149 (Version 1)
Quarter: 2022Q2

REPORT INFORMATION
  Report Type: Report from Study
  Country: US (occurrence: US)
  Receive Date: 20220504
  Receipt Date: 20220504
  Transmission Date: 20220721
  Serious: Yes (Other)
  Sender: FDA-Public Use
  Company Number: US-NOVARTISPH-NVSC2022US101775

PATIENT
  Sex: Male

DRUGS (1)
  1. ENTRESTO [Suspect]
     Active Substance: SACUBITRIL\VALSARTAN
     Indication: Product used for unknown indication
     Dosage: 0.5 DOSAGE FORM, BID
     Route: 065

REACTIONS (5)
  - Cardiomyopathy [Unknown]
  - Cardiac failure [Unknown]
  - Blood pressure abnormal [Unknown]
  - Wrong technique in product usage process [Unknown]
  - Off label use [Unknown]
